FAERS Safety Report 15835958 (Version 2)
Quarter: 2019Q1

REPORT INFORMATION
  Report Type: Report from Study
  Country: US (occurrence: US)
  Receive Date: 20190117
  Receipt Date: 20190214
  Transmission Date: 20190417
  Serious: Yes (Other)
  Sender: FDA-Public Use
  Company Number: US-AMGEN INC.-USASL2018184114

PATIENT
  Age: 61 Year
  Sex: Female

DRUGS (3)
  1. TOPAMAX [Concomitant]
     Active Substance: TOPIRAMATE
     Dosage: UNK
  2. AIMOVIG [Suspect]
     Active Substance: ERENUMAB-AOOE
     Indication: PRODUCT USED FOR UNKNOWN INDICATION
     Dosage: UNK
     Route: 065
     Dates: start: 2018, end: 2018
  3. ZOMIG [Concomitant]
     Active Substance: ZOLMITRIPTAN
     Dosage: UNK

REACTIONS (1)
  - Constipation [Recovered/Resolved]

NARRATIVE: CASE EVENT DATE: 201807
